FAERS Safety Report 10665595 (Version 2)
Quarter: 2015Q1

REPORT INFORMATION
  Report Type: Spontaneous
  Country: CA (occurrence: CA)
  Receive Date: 20141219
  Receipt Date: 20150106
  Transmission Date: 20150720
  Serious: Yes (Death, Other)
  Sender: FDA-Public Use
  Company Number: CA-CUBIST PHARMACEUTICALS, INC.-2014CBST001652

PATIENT

DRUGS (2)
  1. CUBICIN [Suspect]
     Active Substance: DAPTOMYCIN
     Indication: STAPHYLOCOCCAL BACTERAEMIA
     Dosage: UNK UNK, UNK
     Route: 065
  2. CEFTRIAXONE. [Concomitant]
     Active Substance: CEFTRIAXONE
     Indication: STAPHYLOCOCCAL BACTERAEMIA
     Dosage: UNK UNK, UNK
     Route: 065

REACTIONS (3)
  - Renal failure [Fatal]
  - Sepsis [Not Recovered/Not Resolved]
  - Bacteraemia [Unknown]
